FAERS Safety Report 6504694-6 (Version None)
Quarter: 2009Q4

REPORT INFORMATION
  Report Type: 
  Country: None (occurrence: None)
  Receive Date: 20091215
  Receipt Date: 20091203
  Transmission Date: 20100525
  Serious: Yes (Death, Hospitalization)
  Sender: FDA-Public Use
  Company Number: PI-04035-001

PATIENT
  Sex: 0

DRUGS (1)
  1. CHLORAPREP [Suspect]

REACTIONS (2)
  - BURNS THIRD DEGREE [None]
  - IATROGENIC INJURY [None]
